FAERS Safety Report 10597109 (Version 2)
Quarter: 2014Q4

REPORT INFORMATION
  Report Type: Report from Study
  Country: US (occurrence: US)
  Receive Date: 20141121
  Receipt Date: 20141222
  Transmission Date: 20150529
  Serious: Yes (Death)
  Sender: FDA-Public Use
  Company Number: US-ROCHE-1493797

PATIENT
  Age: 56 Year
  Sex: Male
  Weight: 106.69 kg

DRUGS (9)
  1. ACTEMRA [Suspect]
     Active Substance: TOCILIZUMAB
     Dosage: RETREATMENT # 2, ACTEMRA ANAPHYLAXIS
     Route: 042
     Dates: start: 20121228
  2. SIMVASTATIN. [Concomitant]
     Active Substance: SIMVASTATIN
     Route: 048
  3. LEFLUNOMID [Concomitant]
     Active Substance: LEFLUNOMIDE
     Route: 048
  4. ACTEMRA [Suspect]
     Active Substance: TOCILIZUMAB
     Route: 042
     Dates: start: 20101111
  5. ACTEMRA [Suspect]
     Active Substance: TOCILIZUMAB
     Dosage: DOSE DISCONTINUED
     Route: 042
     Dates: start: 20101209
  6. ACTEMRA [Suspect]
     Active Substance: TOCILIZUMAB
     Dosage: THERAPY RESTARTED
     Route: 042
     Dates: start: 20121129
  7. ACTEMRA [Suspect]
     Active Substance: TOCILIZUMAB
     Indication: PRODUCT USED FOR UNKNOWN INDICATION
     Dosage: 4 MG/ KG
     Route: 042
     Dates: start: 20101014
  8. PREDNISONE. [Concomitant]
     Active Substance: PREDNISONE
     Route: 048
  9. LISINOPRIL AND HYDROCHLOROTHIAZIDE [Concomitant]
     Active Substance: HYDROCHLOROTHIAZIDE\LISINOPRIL
     Dosage: 20 MG/ 12.5 MG
     Route: 048

REACTIONS (1)
  - Anaphylactic reaction [Fatal]

NARRATIVE: CASE EVENT DATE: 20121228
